FAERS Safety Report 9587024 (Version 2)
Quarter: 2013Q4

REPORT INFORMATION
  Report Type: Spontaneous
  Country: AR (occurrence: AR)
  Receive Date: 20131003
  Receipt Date: 20131014
  Transmission Date: 20140711
  Serious: Yes (Other)
  Sender: FDA-Public Use
  Company Number: AR-PFIZER INC-2013280828

PATIENT
  Age: 57 Year
  Sex: Male

DRUGS (3)
  1. SOMAVERT [Suspect]
     Indication: ACROMEGALY
     Dosage: 15 MG, 3X/WEEK
     Route: 058
     Dates: start: 20130327
  2. SOMATULINE [Concomitant]
     Dosage: UNK
     Route: 058
     Dates: start: 2009, end: 20130906
  3. ASPIRINA [Concomitant]
     Dosage: UNK
     Route: 048
     Dates: start: 2008

REACTIONS (2)
  - Liver disorder [Recovering/Resolving]
  - Hepatitis [Recovering/Resolving]
